FAERS Safety Report 11551617 (Version 1)
Quarter: 2015Q3

REPORT INFORMATION
  Report Type: Spontaneous
  Country: US (occurrence: US)
  Receive Date: 20150903
  Receipt Date: 20150903
  Transmission Date: 20151125
  Serious: No
  Sender: FDA-Public Use
  Company Number: US-ELI_LILLY_AND_COMPANY-US201208003325

PATIENT
  Sex: Female

DRUGS (7)
  1. HUMULIN N [Concomitant]
     Active Substance: INSULIN HUMAN
  2. HUMULIN R [Concomitant]
     Active Substance: INSULIN HUMAN
  3. LISINOPRIL. [Concomitant]
     Active Substance: LISINOPRIL
  4. HUMALOG [Suspect]
     Active Substance: INSULIN LISPRO
     Indication: DIABETES MELLITUS
     Dosage: UNK UNK, PRN
     Dates: start: 201207
  5. CARDIZEM [Concomitant]
     Active Substance: DILTIAZEM HYDROCHLORIDE
  6. HUMALOG MIX75/25 [Suspect]
     Active Substance: INSULIN LISPRO
     Indication: DIABETES MELLITUS
     Dosage: 34 U, QD
     Dates: start: 201207
  7. METOPROLOL [Concomitant]
     Active Substance: METOPROLOL

REACTIONS (4)
  - Malaise [Unknown]
  - Abdominal pain upper [Unknown]
  - Headache [Unknown]
  - Blood glucose increased [Unknown]

NARRATIVE: CASE EVENT DATE: 201207
